FAERS Safety Report 12668682 (Version 1)
Quarter: 2016Q3

REPORT INFORMATION
  Report Type: Spontaneous
  Country: US (occurrence: US)
  Receive Date: 20160819
  Receipt Date: 20160819
  Transmission Date: 20161109
  Serious: Yes (Other)
  Sender: FDA-Public Use
  Company Number: US-JNJFOC-20160806982

PATIENT
  Age: 10 Year
  Sex: Male
  Weight: 35.02 kg

DRUGS (2)
  1. CHILDRENS TYLENOL [Suspect]
     Active Substance: ACETAMINOPHEN
     Indication: PYREXIA
     Dosage: 15MG/KG EVERY 4 HRS FOR 3 DAYS
     Route: 048
  2. CHILDRENS TYLENOL [Suspect]
     Active Substance: ACETAMINOPHEN
     Indication: PYREXIA
     Dosage: 30 TABS OF 160MG (4800)
     Route: 048

REACTIONS (2)
  - Abdominal pain [Unknown]
  - Overdose [Unknown]
